FAERS Safety Report 13503307 (Version 2)
Quarter: 2017Q2

REPORT INFORMATION
  Report Type: Report from Study
  Country: CA (occurrence: CA)
  Receive Date: 20170502
  Receipt Date: 20170530
  Transmission Date: 20170830
  Serious: Yes (Other)
  Sender: FDA-Public Use
  Company Number: PHHY2017CA060484

PATIENT
  Age: 77 Year
  Sex: Male

DRUGS (1)
  1. ACLASTA [Suspect]
     Active Substance: ZOLEDRONIC ACID
     Indication: OSTEITIS DEFORMANS
     Dosage: 5 MG, UNK
     Route: 042

REACTIONS (3)
  - Leukaemia [Unknown]
  - Vein collapse [Unknown]
  - Poor venous access [Unknown]

NARRATIVE: CASE EVENT DATE: 20170419
